FAERS Safety Report 14125101 (Version 3)
Quarter: 2017Q4

REPORT INFORMATION
  Report Type: Spontaneous
  Country: GB (occurrence: GB)
  Receive Date: 20171025
  Receipt Date: 20171115
  Transmission Date: 20180321
  Serious: Yes (Other)
  Sender: FDA-Public Use
  Company Number: PHFR2017GB001732

PATIENT
  Age: 54 Year
  Sex: Female
  Weight: 75 kg

DRUGS (1)
  1. NILOTINIB [Suspect]
     Active Substance: NILOTINIB
     Indication: CHRONIC MYELOID LEUKAEMIA
     Dosage: 600 MG, QD
     Route: 048
     Dates: start: 20100927

REACTIONS (3)
  - Diabetes mellitus [Unknown]
  - Gastric ulcer [Unknown]
  - Cataract [Recovered/Resolved with Sequelae]

NARRATIVE: CASE EVENT DATE: 201509
